FAERS Safety Report 8869557 (Version 1)
Quarter: 2012Q4

REPORT INFORMATION
  Report Type: 
  Country: US (occurrence: US)
  Receive Date: 20121026
  Receipt Date: 20121026
  Transmission Date: 20130627
  Serious: No
  Sender: FDA-Public Use
  Company Number: US-AMGEN-USASP2012042861

PATIENT
  Sex: Female
  Weight: 58.05 kg

DRUGS (4)
  1. ENBREL [Suspect]
     Indication: PRODUCT USED FOR UNKNOWN INDICATION
     Dosage: 50 mg/ml, qwk
     Route: 058
  2. VITAMIN D /00107901/ [Concomitant]
     Dosage: 400 unit, UNK
  3. CALCIUM [Concomitant]
     Dosage: 500 Tablet
  4. MULTIVITAMINS WITH MINERALS        /90003801/ [Concomitant]
     Dosage: UNK

REACTIONS (1)
  - Injection site pain [Unknown]
